FAERS Safety Report 25064098 (Version 1)
Quarter: 2025Q1

REPORT INFORMATION
  Report Type: Spontaneous
  Country: US (occurrence: None)
  Receive Date: 20250310
  Receipt Date: 20250310
  Transmission Date: 20250409
  Serious: Yes (Life-Threatening)
  Sender: FDA-CTU
  Company Number: None

PATIENT
  Age: 86 Year
  Sex: Male
  Weight: 99.79 kg

DRUGS (1)
  1. NICARDIPINE [Suspect]
     Active Substance: NICARDIPINE

REACTIONS (3)
  - Device information output issue [None]
  - Device failure [None]
  - Device malfunction [None]

NARRATIVE: CASE EVENT DATE: 20250309
